FAERS Safety Report 4312516-7 (Version None)
Quarter: 2004Q1

REPORT INFORMATION
  Report Type: 
  Country: None (occurrence: None)
  Receive Date: 20040302
  Receipt Date: 20031204
  Transmission Date: 20041129
  Serious: No
  Sender: FDA-Public Use
  Company Number: 701251

PATIENT
  Age: 49 Year
  Sex: Female

DRUGS (1)
  1. AMEVIVE [Suspect]
     Indication: PSORIASIS
     Dosage: 7.5 MG QW IV
     Route: 042
     Dates: start: 20030809, end: 20031031

REACTIONS (2)
  - DRUG INEFFECTIVE [None]
  - PSORIASIS [None]
